FAERS Safety Report 8051472-5 (Version None)
Quarter: 2012Q1

REPORT INFORMATION
  Report Type: 
  Country: None (occurrence: None)
  Receive Date: 20120117
  Receipt Date: 20120110
  Transmission Date: 20120608
  Serious: Yes (Other)
  Sender: FDA-Public Use
  Company Number: US-ASTRAZENECA-2011SE43881

PATIENT
  Age: 47 Year
  Sex: Male

DRUGS (1)
  1. CRESTOR [Suspect]
     Route: 048

REACTIONS (7)
  - AGITATION [None]
  - ACCIDENT AT WORK [None]
  - ROTATOR CUFF SYNDROME [None]
  - INTERVERTEBRAL DISC INJURY [None]
  - PSYCHOMOTOR HYPERACTIVITY [None]
  - DRUG DOSE OMISSION [None]
  - DIZZINESS [None]
